FAERS Safety Report 7068627-9 (Version None)
Quarter: 2010Q4

REPORT INFORMATION
  Report Type: 
  Country: None (occurrence: None)
  Receive Date: 20101027
  Receipt Date: 20101027
  Transmission Date: 20110411
  Serious: Yes (Life-Threatening, Hospitalization, Disabling)
  Sender: FDA-Public Use
  Company Number: None

PATIENT
  Age: 48 Year
  Sex: Female
  Weight: 74.8435 kg

DRUGS (1)
  1. NIASPAN [Suspect]
     Indication: CORONARY ARTERY DISEASE
     Dosage: 1 TAB AT BEDTIME ONCE PO
     Route: 048
     Dates: start: 20100901, end: 20101023

REACTIONS (3)
  - BLOOD PRESSURE DECREASED [None]
  - FEELING HOT [None]
  - LOSS OF CONSCIOUSNESS [None]
